FAERS Safety Report 8328555-5 (Version None)
Quarter: 2012Q2

REPORT INFORMATION
  Report Type: 
  Country: None (occurrence: None)
  Receive Date: 20120430
  Receipt Date: 20110422
  Transmission Date: 20120825
  Serious: Yes (Other)
  Sender: FDA-Public Use
  Company Number: 2011000001

PATIENT
  Age: 55 Year
  Sex: Male

DRUGS (1)
  1. ACEON [Suspect]
     Indication: HYPERTENSION
     Dosage: 2 MG, QD, ORAL
     Route: 048
     Dates: start: 20110111, end: 20110301

REACTIONS (1)
  - DYSPNOEA [None]
